FAERS Safety Report 13918642 (Version 1)
Quarter: 2017Q3

REPORT INFORMATION
  Report Type: Spontaneous
  Country: JP (occurrence: JP)
  Receive Date: 20170829
  Receipt Date: 20170829
  Transmission Date: 20171127
  Serious: Yes (Other)
  Sender: FDA-Public Use
  Company Number: PHJP1991JP000559

PATIENT
  Age: 65 Year
  Sex: Female

DRUGS (1)
  1. TEGRETOL [Suspect]
     Active Substance: CARBAMAZEPINE
     Indication: TONIC CONVULSION
     Dosage: 800 MG, QD
     Route: 048
     Dates: start: 19850204, end: 19860615

REACTIONS (1)
  - Aplasia pure red cell [Recovered/Resolved]
